FAERS Safety Report 9307904 (Version 1)
Quarter: 2013Q2

REPORT INFORMATION
  Report Type: Report from Study
  Country: AU (occurrence: AU)
  Receive Date: 20130524
  Receipt Date: 20130524
  Transmission Date: 20140414
  Serious: Yes (Other)
  Sender: FDA-Public Use
  Company Number: PHHY2013AU051669

PATIENT
  Sex: Female

DRUGS (1)
  1. ACLASTA [Suspect]
     Dosage: 5 MG
     Route: 042
     Dates: start: 20110405

REACTIONS (5)
  - Osteonecrosis [Recovered/Resolved]
  - Pathological fracture [Recovered/Resolved]
  - Fall [Recovered/Resolved]
  - Device breakage [Recovered/Resolved]
  - Femur fracture [Recovered/Resolved]
